FAERS Safety Report 5644088-9 (Version None)
Quarter: 2008Q1

REPORT INFORMATION
  Report Type: 
  Country: None (occurrence: None)
  Receive Date: 20080226
  Receipt Date: 20080213
  Transmission Date: 20080703
  Serious: Yes (Hospitalization)
  Sender: FDA-Public Use
  Company Number: B0508151A

PATIENT
  Age: 53 Year
  Sex: Female
  Weight: 162.8 kg

DRUGS (2)
  1. LAPATINIB TABLET (LAPATINIB) [Suspect]
     Indication: BREAST CANCER METASTATIC
     Dosage: 1250 MG/PER DAY/ORAL
     Route: 048
     Dates: start: 20080128, end: 20080212
  2. CAPECITABINE TABLET (CAPECITABINE) [Suspect]
     Indication: BREAST CANCER METASTATIC
     Dosage: 1000 MG/M2/TWICE PER DAY/ORAL
     Route: 048
     Dates: start: 20080128, end: 20080207

REACTIONS (7)
  - BLOOD BILIRUBIN INCREASED [None]
  - BLOOD POTASSIUM DECREASED [None]
  - BLOOD UREA INCREASED [None]
  - DIARRHOEA [None]
  - LYMPHOCYTE COUNT DECREASED [None]
  - MUCOSAL INFLAMMATION [None]
  - NEUTROPHIL COUNT INCREASED [None]
